FAERS Safety Report 6025462-8 (Version None)
Quarter: 2008Q4

REPORT INFORMATION
  Report Type: 
  Country: None (occurrence: None)
  Receive Date: 20081231
  Receipt Date: 20081222
  Transmission Date: 20090506
  Serious: Yes (Death)
  Sender: FDA-Public Use
  Company Number: JP-PFIZER INC-2008157267

PATIENT

DRUGS (10)
  1. SILDENAFIL CITRATE [Suspect]
     Indication: PULMONARY HYPERTENSION
     Dosage: UNK
     Route: 048
     Dates: start: 20081119, end: 20081213
  2. MUCODYNE [Concomitant]
     Route: 048
  3. ATARAX [Concomitant]
     Route: 048
  4. SENNOSIDES [Concomitant]
     Route: 048
  5. LASIX [Concomitant]
  6. HOKUNALIN [Concomitant]
     Route: 062
  7. PROSTAL [Concomitant]
     Route: 048
  8. VASOLAN [Concomitant]
     Route: 042
     Dates: start: 20081212
  9. ROCEPHIN [Concomitant]
     Route: 042
     Dates: start: 20081212
  10. MINOCYCLINE [Concomitant]
     Route: 042
     Dates: start: 20081212

REACTIONS (1)
  - INTERSTITIAL LUNG DISEASE [None]
